FAERS Safety Report 9903867 (Version 1)
Quarter: 2014Q1

REPORT INFORMATION
  Report Type: Spontaneous
  Country: US (occurrence: US)
  Receive Date: 20140218
  Receipt Date: 20140218
  Transmission Date: 20141002
  Serious: No
  Sender: FDA-Public Use
  Company Number: US-BIOGENIDEC-2014BI014008

PATIENT
  Sex: Female

DRUGS (9)
  1. TYSABRI [Suspect]
     Indication: MULTIPLE SCLEROSIS
     Route: 042
     Dates: start: 20080225
  2. PRESTIQ ER [Concomitant]
     Route: 048
  3. DEPLIN [Concomitant]
  4. FLONASE [Concomitant]
  5. LAMICTAL [Concomitant]
     Route: 048
  6. NEURONTIN [Concomitant]
     Route: 048
  7. NEXIUM [Concomitant]
     Route: 048
  8. EFFEXOR XR [Concomitant]
     Route: 048
  9. PROVIGIL [Concomitant]
     Route: 048

REACTIONS (3)
  - Gait disturbance [Unknown]
  - Urinary retention [Unknown]
  - Balance disorder [Unknown]
